FAERS Safety Report 9092714 (Version 1)
Quarter: 2013Q1

REPORT INFORMATION
  Report Type: Spontaneous
  Country: US (occurrence: None)
  Receive Date: 20130213
  Receipt Date: 20130213
  Transmission Date: 20140127
  Serious: Yes (Other)
  Sender: FDA-Public Use
  Company Number: None

PATIENT
  Age: 55 Year
  Sex: Female
  Weight: 65.75 kg

DRUGS (3)
  1. VENLAFAXINE [Suspect]
     Route: 048
  2. VENLAFAXINE [Suspect]
     Route: 048
  3. VENLAFAXINE [Suspect]
     Route: 048

REACTIONS (4)
  - Abnormal behaviour [None]
  - Agitation [None]
  - Drug dose omission [None]
  - Refusal of treatment by patient [None]
